FAERS Safety Report 25267353 (Version 2)
Quarter: 2025Q2

REPORT INFORMATION
  Report Type: Spontaneous
  Country: DE (occurrence: DE)
  Receive Date: 20250505
  Receipt Date: 20250512
  Transmission Date: 20250717
  Serious: Yes (Life-Threatening, Hospitalization, Other)
  Sender: LUPIN
  Company Number: DE-LUPIN PHARMACEUTICALS INC.-2025-03656

PATIENT
  Age: 42 Year
  Sex: Female
  Weight: 100 kg

DRUGS (4)
  1. QUETIAPINE [Suspect]
     Active Substance: QUETIAPINE
     Indication: Borderline personality disorder
     Route: 065
  2. PHYSOSTIGMINE [Concomitant]
     Active Substance: PHYSOSTIGMINE
     Indication: Tachycardia
     Route: 065
  3. PHYSOSTIGMINE [Concomitant]
     Active Substance: PHYSOSTIGMINE
     Indication: Hyperthermia
  4. MAGNESIUM [Concomitant]
     Active Substance: MAGNESIUM
     Indication: Tachycardia
     Route: 065

REACTIONS (8)
  - Toxicity to various agents [Recovered/Resolved]
  - Shock [Recovered/Resolved]
  - Rhabdomyolysis [Recovered/Resolved]
  - Acute kidney injury [Recovered/Resolved]
  - Transaminases increased [Recovered/Resolved]
  - Anticholinergic syndrome [Recovered/Resolved]
  - Multiple organ dysfunction syndrome [Recovered/Resolved]
  - Off label use [Unknown]
